FAERS Safety Report 17000750 (Version 1)
Quarter: 2019Q4

REPORT INFORMATION
  Report Type: Spontaneous
  Country: US (occurrence: US)
  Receive Date: 20191106
  Receipt Date: 20191106
  Transmission Date: 20200122
  Serious: No
  Sender: FDA-Public Use
  Company Number: US-TEVA-2019-US-1130993

PATIENT
  Sex: Female

DRUGS (2)
  1. SPRINTEC [Suspect]
     Active Substance: ETHINYL ESTRADIOL\NORGESTIMATE
     Indication: MENSTRUATION IRREGULAR
  2. SPRINTEC [Suspect]
     Active Substance: ETHINYL ESTRADIOL\NORGESTIMATE
     Indication: CONTRACEPTION
     Dosage: DOSE STRENGTH:  0.250 MG/0.035 MG
     Route: 065
     Dates: start: 201908

REACTIONS (3)
  - Menstruation irregular [Unknown]
  - Product use in unapproved indication [Unknown]
  - Product dose omission [Unknown]
